FAERS Safety Report 8069805-2 (Version None)
Quarter: 2012Q1

REPORT INFORMATION
  Report Type: 
  Country: None (occurrence: None)
  Receive Date: 20120125
  Receipt Date: 20120118
  Transmission Date: 20120608
  Serious: Yes (Hospitalization)
  Sender: FDA-Public Use
  Company Number: US-SANOFI-AVENTIS-2012SA004017

PATIENT
  Age: 68 Year
  Sex: Male
  Weight: 73 kg

DRUGS (2)
  1. PLAVIX [Suspect]
     Indication: PERCUTANEOUS CORONARY INTERVENTION
     Route: 048
     Dates: start: 20111005
  2. PLAVIX [Suspect]
     Route: 048
     Dates: start: 20111005

REACTIONS (4)
  - BLADDER CANCER [None]
  - HAEMORRHAGE URINARY TRACT [None]
  - BLADDER NEOPLASM [None]
  - HAEMATURIA [None]
